FAERS Safety Report 24562047 (Version 1)
Quarter: 2024Q4

REPORT INFORMATION
  Report Type: Spontaneous
  Country: IN (occurrence: IN)
  Receive Date: 20241029
  Receipt Date: 20241029
  Transmission Date: 20250115
  Serious: Yes (Death)
  Sender: STRIDES
  Company Number: IN-STRIDES ARCOLAB LIMITED-2024SP013909

PATIENT
  Age: 29 Year
  Sex: Female

DRUGS (6)
  1. PREDNISOLONE [Suspect]
     Active Substance: PREDNISOLONE
     Indication: Immunosuppressant drug therapy
     Dosage: UNK
     Route: 065
  2. PREDNISOLONE [Suspect]
     Active Substance: PREDNISOLONE
     Indication: Renal transplant
  3. TACROLIMUS [Suspect]
     Active Substance: TACROLIMUS
     Indication: Immunosuppressant drug therapy
     Dosage: UNK
     Route: 065
  4. TACROLIMUS [Suspect]
     Active Substance: TACROLIMUS
     Indication: Renal transplant
  5. MYCOPHENOLATE SODIUM [Suspect]
     Active Substance: MYCOPHENOLATE SODIUM
     Indication: Immunosuppressant drug therapy
     Dosage: UNK
     Route: 065
  6. MYCOPHENOLATE SODIUM [Suspect]
     Active Substance: MYCOPHENOLATE SODIUM
     Indication: Renal transplant

REACTIONS (4)
  - Disseminated cryptococcosis [Fatal]
  - Histoplasmosis disseminated [Fatal]
  - Septic shock [Fatal]
  - Klebsiella infection [Fatal]
